FAERS Safety Report 18197951 (Version 4)
Quarter: 2020Q4

REPORT INFORMATION
  Report Type: Spontaneous
  Country: AU (occurrence: AU)
  Receive Date: 20200826
  Receipt Date: 20201017
  Transmission Date: 20210113
  Serious: Yes (Hospitalization)
  Sender: FDA-Public Use
  Company Number: AU-MYLANLABS-2020M1073311

PATIENT
  Age: 28 Year
  Sex: Female

DRUGS (5)
  1. CLOZARIL [Suspect]
     Active Substance: CLOZAPINE
     Dosage: UNK
     Route: 065
     Dates: end: 20201001
  2. CLOZARIL [Suspect]
     Active Substance: CLOZAPINE
     Dosage: 2.5 GRAM
     Route: 065
     Dates: start: 20200924
  3. CLOZARIL [Suspect]
     Active Substance: CLOZAPINE
     Dosage: 525 MILLIGRAM
     Route: 048
     Dates: start: 20160520
  4. CLOZARIL [Suspect]
     Active Substance: CLOZAPINE
     Dosage: UNK
     Route: 048
     Dates: start: 20200809
  5. CLOZARIL [Suspect]
     Active Substance: CLOZAPINE
     Indication: SCHIZOPHRENIA
     Dosage: 400 MILLIGRAM
     Route: 048
     Dates: start: 20160520

REACTIONS (5)
  - Overdose [Unknown]
  - Red cell distribution width increased [Unknown]
  - Foreign body ingestion [Unknown]
  - Antipsychotic drug level above therapeutic [Unknown]
  - Eosinophil count decreased [Unknown]

NARRATIVE: CASE EVENT DATE: 20200810
